FAERS Safety Report 18693313 (Version 2)
Quarter: 2021Q1

REPORT INFORMATION
  Report Type: Report from Study
  Country: ES (occurrence: ES)
  Receive Date: 20210104
  Receipt Date: 20210216
  Transmission Date: 20210419
  Serious: Yes (Other)
  Sender: FDA-Public Use
  Company Number: ES-JNJFOC-20201253032

PATIENT

DRUGS (2)
  1. REMICADE [Suspect]
     Active Substance: INFLIXIMAB
     Indication: OSTEOMYELITIS CHRONIC
     Route: 042
  2. METHOTREXATE. [Concomitant]
     Active Substance: METHOTREXATE
     Route: 048

REACTIONS (5)
  - Osteomyelitis bacterial [Recovered/Resolved]
  - Product use in unapproved indication [Unknown]
  - Leishmaniasis [Recovered/Resolved]
  - Off label use [Unknown]
  - Drug ineffective [Unknown]
